FAERS Safety Report 6551127-X (Version None)
Quarter: 2010Q1

REPORT INFORMATION
  Report Type: 
  Country: None (occurrence: None)
  Receive Date: 20100121
  Receipt Date: 20100105
  Transmission Date: 20100710
  Serious: Yes (Hospitalization)
  Sender: FDA-Public Use
  Company Number: 100105-0000004

PATIENT
  Age: 16 Month
  Sex: Female

DRUGS (5)
  1. VIGABATRIN (VIGABATRIN) [Suspect]
     Indication: CONVULSION
     Dosage: 120 MG/KG; QD;
  2. CLONAZEPAM [Suspect]
     Indication: CONVULSION
     Dosage: 100 UG/KG; QD;
  3. LEVETIRACETAM [Suspect]
     Indication: CONVULSION
     Dosage: 60 MG/KG; QD;, 30 MG/KG; QD;
  4. CLOBAZAM [Concomitant]
  5. PREDNISOLONE [Concomitant]

REACTIONS (8)
  - ASPIRATION [None]
  - BLISTER [None]
  - CHOKING [None]
  - NEURODEVELOPMENTAL DISORDER [None]
  - RESPIRATORY DEPRESSION [None]
  - RESPIRATORY SYNCYTIAL VIRUS BRONCHIOLITIS [None]
  - SOMNOLENCE [None]
  - SWELLING FACE [None]
